FAERS Safety Report 5349328-1 (Version None)
Quarter: 2007Q2

REPORT INFORMATION
  Report Type: 
  Country: None (occurrence: None)
  Receive Date: 20070607
  Receipt Date: 20070601
  Transmission Date: 20071010
  Serious: Yes (Hospitalization)
  Sender: FDA-Public Use
  Company Number: D0053019A

PATIENT
  Age: 26 Year
  Sex: Male

DRUGS (8)
  1. ULTIVA [Suspect]
     Indication: NASAL SEPTAL OPERATION
     Route: 042
     Dates: start: 20070313, end: 20070313
  2. ATROPINE SULFATE [Suspect]
     Dosage: 1MG SINGLE DOSE
     Route: 030
     Dates: start: 20070313, end: 20070313
  3. PROMETHAZINE [Suspect]
     Dosage: 50MG SINGLE DOSE
     Route: 030
     Dates: start: 20070313, end: 20070313
  4. CLINDAMYCIN HCL [Suspect]
     Dosage: 300MG SINGLE DOSE
     Route: 048
     Dates: start: 20070313, end: 20070313
  5. RANITIDINE [Suspect]
     Dosage: 300MG SINGLE DOSE
     Route: 048
     Dates: start: 20070312, end: 20070312
  6. DORMICUM [Suspect]
     Indication: SEDATION
     Dosage: 3MG PER DAY
     Route: 042
     Dates: start: 20070313
  7. ULTRACAIN [Suspect]
     Dosage: 5ML FOUR TIMES PER DAY
     Route: 058
  8. DICLOFENAC [Suspect]
     Dosage: 100MG SINGLE DOSE
     Route: 048
     Dates: start: 20070312, end: 20070312

REACTIONS (1)
  - MYOCLONUS [None]
